FAERS Safety Report 6750586-7 (Version None)
Quarter: 2010Q2

REPORT INFORMATION
  Report Type: 
  Country: None (occurrence: None)
  Receive Date: 20100528
  Receipt Date: 20100528
  Transmission Date: 20101027
  Serious: Yes (Other)
  Sender: FDA-Public Use
  Company Number: None

PATIENT
  Age: 36 Year
  Sex: Female
  Weight: 81.6475 kg

DRUGS (2)
  1. FLUCONAZOLE [Suspect]
     Indication: DISEASE RECURRENCE
     Dosage: ONE TABLET AS NEEDED PO
     Route: 048
  2. FLUCONAZOLE [Suspect]
     Indication: FUNGAL INFECTION
     Dosage: ONE TABLET AS NEEDED PO
     Route: 048

REACTIONS (5)
  - DRUG ERUPTION [None]
  - HAND-FOOT-AND-MOUTH DISEASE [None]
  - LIP ULCERATION [None]
  - MOUTH ULCERATION [None]
  - SKIN ULCER [None]
